FAERS Safety Report 11211128 (Version 3)
Quarter: 2015Q3

REPORT INFORMATION
  Report Type: Report from Study
  Country: US (occurrence: US)
  Receive Date: 20150623
  Receipt Date: 20150720
  Transmission Date: 20151125
  Serious: Yes (Other)
  Sender: FDA-Public Use
  Company Number: US-ROCHE-1597848

PATIENT
  Age: 81 Year
  Sex: Male

DRUGS (2)
  1. LUCENTIS [Suspect]
     Active Substance: RANIBIZUMAB
     Indication: MACULAR DEGENERATION
     Dosage: LEFT EYE
     Route: 065
     Dates: start: 20150408, end: 20150605
  2. LUCENTIS [Suspect]
     Active Substance: RANIBIZUMAB
     Dosage: EVERY 4 - 6 WEEKS
     Route: 065
     Dates: start: 20150408, end: 20150605

REACTIONS (2)
  - Endophthalmitis [Not Recovered/Not Resolved]
  - Retinal detachment [Unknown]

NARRATIVE: CASE EVENT DATE: 20150605
